FAERS Safety Report 11587863 (Version 5)
Quarter: 2015Q4

REPORT INFORMATION
  Report Type: Spontaneous
  Country: GB (occurrence: GB)
  Receive Date: 20151001
  Receipt Date: 20151209
  Transmission Date: 20160304
  Serious: Yes (Other)
  Sender: FDA-Public Use
  Company Number: PHFR2015GB007243

PATIENT
  Age: 54 Year
  Sex: Female
  Weight: 99 kg

DRUGS (1)
  1. COSENTYX [Suspect]
     Active Substance: SECUKINUMAB
     Indication: PSORIASIS
     Dosage: 300 MG, QW FOR 0, 1, 2, 3 WEEKS
     Route: 058
     Dates: start: 20150801, end: 20150901

REACTIONS (6)
  - Mouth swelling [Unknown]
  - Eczema [Recovering/Resolving]
  - Dysphonia [Unknown]
  - Oral pain [Unknown]
  - Dyshidrotic eczema [Recovering/Resolving]
  - Enlarged uvula [Unknown]

NARRATIVE: CASE EVENT DATE: 20150820
